FAERS Safety Report 22331488 (Version 1)
Quarter: 2023Q2

REPORT INFORMATION
  Report Type: Spontaneous
  Country: US (occurrence: None)
  Receive Date: 20230515
  Receipt Date: 20230515
  Transmission Date: 20230721
  Serious: Yes (Disabling)
  Sender: FDA-Public Use
  Company Number: None

PATIENT
  Age: 72 Year
  Sex: Female
  Weight: 62.1 kg

DRUGS (15)
  1. REXULTI [Suspect]
     Active Substance: BREXPIPRAZOLE
     Indication: Depression
  2. SINEMET [Concomitant]
     Active Substance: CARBIDOPA\LEVODOPA
  3. MIRAPEX [Concomitant]
     Active Substance: PRAMIPEXOLE DIHYDROCHLORIDE
  4. SINEMET CR [Concomitant]
     Active Substance: CARBIDOPA\LEVODOPA
  5. AUVELITY [Concomitant]
     Active Substance: BUPROPION HYDROCHLORIDE\DEXTROMETHORPHAN HYDROBROMIDE
  6. LAMICTAL [Concomitant]
     Active Substance: LAMOTRIGINE
  7. TOPROL XL [Concomitant]
     Active Substance: METOPROLOL SUCCINATE
  8. TRAZODONE [Concomitant]
     Active Substance: TRAZODONE HYDROCHLORIDE
  9. EFFEXOR [Concomitant]
     Active Substance: VENLAFAXINE HYDROCHLORIDE
  10. Qoq10 [Concomitant]
  11. DIETARY SUPPLEMENT [Concomitant]
     Active Substance: DIETARY SUPPLEMENT
  12. ENZYMES [Concomitant]
  13. PROBIOTICS NOS [Concomitant]
     Active Substance: PROBIOTICS NOS
  14. VITAMIN D NOS [Concomitant]
     Active Substance: VITAMIN D NOS
  15. VITAMINS [Concomitant]
     Active Substance: VITAMINS

REACTIONS (5)
  - Sensory disturbance [None]
  - Gait inability [None]
  - Parkinsonism [None]
  - Quality of life decreased [None]
  - Drug ineffective [None]

NARRATIVE: CASE EVENT DATE: 20220801
